FAERS Safety Report 25669082 (Version 2)
Quarter: 2025Q4

REPORT INFORMATION
  Report Type: Spontaneous
  Country: CN (occurrence: CN)
  Receive Date: 20250812
  Receipt Date: 20251030
  Transmission Date: 20260118
  Serious: Yes (Other)
  Sender: RANBAXY
  Company Number: CN-SUN PHARMACEUTICAL INDUSTRIES INC-2025R1-521575

PATIENT
  Age: 54 Year
  Sex: Female

DRUGS (2)
  1. ASCORBIC ACID [Suspect]
     Active Substance: ASCORBIC ACID
     Indication: Neoplasm
     Dosage: 10 GRAM, QD
     Route: 065
  2. ASCORBIC ACID [Suspect]
     Active Substance: ASCORBIC ACID
     Dosage: (1 G/KG, 60 G, QD)
     Route: 065

REACTIONS (3)
  - Intravascular haemolysis [Recovering/Resolving]
  - Haemolytic anaemia [Recovering/Resolving]
  - Jaundice [Recovering/Resolving]
